FAERS Safety Report 9504796 (Version 2)
Quarter: 2013Q4

REPORT INFORMATION
  Report Type: Spontaneous
  Country: US (occurrence: US)
  Receive Date: 20130906
  Receipt Date: 20131204
  Transmission Date: 20140711
  Serious: Yes (Hospitalization, Disabling)
  Sender: FDA-Public Use
  Company Number: US-009507513-1309USA002259

PATIENT
  Sex: Female
  Weight: 106.58 kg

DRUGS (3)
  1. NUVARING [Suspect]
     Indication: CONTRACEPTION
     Dosage: UNK
     Route: 067
     Dates: start: 20100802, end: 20111120
  2. LODINE [Concomitant]
  3. LORTAB [Concomitant]

REACTIONS (3)
  - Ligament sprain [Unknown]
  - Deep vein thrombosis [Unknown]
  - Fall [Unknown]
